FAERS Safety Report 5957727-X (Version None)
Quarter: 2008Q4

REPORT INFORMATION
  Report Type: 
  Country: None (occurrence: None)
  Receive Date: 20081117
  Receipt Date: 20081031
  Transmission Date: 20090506
  Serious: Yes (Hospitalization, Other)
  Sender: FDA-Public Use
  Company Number: 033328

PATIENT
  Age: 27 Year
  Sex: Female
  Weight: 88.9 kg

DRUGS (3)
  1. CLARAVIS [Suspect]
     Dosage: 60 MG, QD, ORAL
     Route: 048
     Dates: start: 20080726, end: 20080902
  2. PAXIL CR [Concomitant]
  3. KLONOPIN [Concomitant]

REACTIONS (7)
  - ABORTION INDUCED [None]
  - ANXIETY [None]
  - DEPRESSION [None]
  - DRUG EXPOSURE DURING PREGNANCY [None]
  - OVERDOSE [None]
  - SUICIDE ATTEMPT [None]
  - UNINTENDED PREGNANCY [None]
